FAERS Safety Report 4886574-5 (Version None)
Quarter: 2005Q4

REPORT INFORMATION
  Report Type: 
  Country: None (occurrence: None)
  Receive Date: 20051220
  Receipt Date: 20050915
  Transmission Date: 20060501
  Serious: Yes (Other)
  Sender: FDA-Public Use
  Company Number: HQWYE506616SEP05

PATIENT
  Age: 39 Year
  Sex: Male
  Weight: 108.96 kg

DRUGS (3)
  1. EFFEXOR XR [Suspect]
     Indication: DEPRESSION
     Dosage: SEE IMAGE
     Route: 048
     Dates: start: 20050701, end: 20050701
  2. EFFEXOR XR [Suspect]
     Indication: DEPRESSION
     Dosage: SEE IMAGE
     Route: 048
     Dates: start: 20050701, end: 20050901
  3. EFFEXOR XR [Suspect]
     Indication: DEPRESSION
     Dosage: SEE IMAGE
     Route: 048
     Dates: start: 20050901, end: 20050911

REACTIONS (11)
  - ANGER [None]
  - ANXIETY [None]
  - BLOOD PRESSURE INCREASED [None]
  - DRUG WITHDRAWAL SYNDROME [None]
  - EYE MOVEMENT DISORDER [None]
  - FATIGUE [None]
  - FEELING ABNORMAL [None]
  - HYPERHIDROSIS [None]
  - MUSCLE SPASMS [None]
  - PARANOIA [None]
  - PERSONALITY CHANGE [None]
